FAERS Safety Report 14907171 (Version 1)
Quarter: 2018Q2

REPORT INFORMATION
  Report Type: Spontaneous
  Country: FR (occurrence: FR)
  Receive Date: 20180517
  Receipt Date: 20180517
  Transmission Date: 20180711
  Serious: Yes (Other)
  Sender: FDA-Public Use
  Company Number: FR-MERCK KGAA-2047969

PATIENT
  Age: 55 Year
  Sex: Female
  Weight: 65 kg

DRUGS (3)
  1. NOVOTHYROX [Suspect]
     Active Substance: LEVOTHYROXINE SODIUM
     Indication: HYPOTHYROIDISM
     Route: 048
     Dates: start: 20170831
  2. NOVOTHYROX [Suspect]
     Active Substance: LEVOTHYROXINE SODIUM
     Route: 048
     Dates: start: 20170912
  3. CYMBALTA [Concomitant]
     Active Substance: DULOXETINE HYDROCHLORIDE

REACTIONS (38)
  - Paralysis [None]
  - Balance disorder [None]
  - Depression [None]
  - Eye disorder [None]
  - Asthenia [None]
  - Blood thyroid stimulating hormone decreased [Recovered/Resolved]
  - Suicidal ideation [None]
  - Bone pain [None]
  - Aggression [None]
  - Gait disturbance [None]
  - Nausea [None]
  - Weight decreased [None]
  - Hyperthyroidism [None]
  - Presyncope [None]
  - Tinnitus [None]
  - Vitamin B12 decreased [None]
  - Palpitations [None]
  - Decreased appetite [None]
  - Cyst [Recovered/Resolved]
  - Anger [None]
  - Fatigue [None]
  - Mobility decreased [None]
  - Dizziness [None]
  - Peripheral swelling [None]
  - Migraine with aura [None]
  - Pain [None]
  - Psychiatric symptom [None]
  - Headache [None]
  - Myalgia [None]
  - Impaired driving ability [None]
  - Alopecia [None]
  - Diarrhoea [None]
  - Loss of personal independence in daily activities [None]
  - Visual impairment [None]
  - Amnesia [None]
  - Emotional distress [None]
  - Anxiety [None]
  - Vomiting [None]

NARRATIVE: CASE EVENT DATE: 20170901
